FAERS Safety Report 7024585-4 (Version None)
Quarter: 2010Q4

REPORT INFORMATION
  Report Type: 
  Country: None (occurrence: None)
  Receive Date: 20101001
  Receipt Date: 20100924
  Transmission Date: 20110411
  Serious: Yes (Other)
  Sender: FDA-Public Use
  Company Number: CA-PFIZER INC-2009152575

PATIENT
  Age: 43 Year
  Sex: Male

DRUGS (3)
  1. ALDACTONE [Suspect]
     Indication: WEIGHT INCREASED
     Dosage: 100 MG, 2X/DAY
     Route: 048
     Dates: start: 20070101
  2. ALDACTONE [Suspect]
     Indication: GENDER IDENTITY DISORDER
  3. PREMARIN [Concomitant]
     Dosage: UNK

REACTIONS (6)
  - ARTHRALGIA [None]
  - CHONDROCALCINOSIS PYROPHOSPHATE [None]
  - GOUT [None]
  - HYPERSENSITIVITY [None]
  - OFF LABEL USE [None]
  - TENDONITIS [None]
